FAERS Safety Report 5724439-7 (Version None)
Quarter: 2008Q2

REPORT INFORMATION
  Report Type: 
  Country: None (occurrence: None)
  Receive Date: 20080428
  Receipt Date: 20080416
  Transmission Date: 20081010
  Serious: Yes (Hospitalization)
  Sender: FDA-Public Use
  Company Number: 2008AP000970

PATIENT
  Age: 39 Year
  Sex: Female

DRUGS (6)
  1. TOPIRAMATE [Suspect]
     Indication: COMPLEX PARTIAL SEIZURES
     Dosage: SEE IMAGE
     Dates: start: 19980101
  2. TOPIRAMATE [Suspect]
     Indication: COMPLEX PARTIAL SEIZURES
     Dosage: SEE IMAGE
     Dates: start: 19980301
  3. TOPIRAMATE [Suspect]
     Indication: COMPLEX PARTIAL SEIZURES
     Dosage: SEE IMAGE
     Dates: start: 19980301
  4. TOPIRAMATE [Suspect]
     Indication: COMPLEX PARTIAL SEIZURES
     Dosage: SEE IMAGE
     Dates: start: 19980401
  5. TOPIRAMATE [Suspect]
     Indication: COMPLEX PARTIAL SEIZURES
     Dosage: SEE IMAGE
     Dates: start: 19980501
  6. CARBAMAZEPINE [Suspect]
     Indication: COMPLEX PARTIAL SEIZURES
     Dosage: 800 MG QD

REACTIONS (14)
  - ACUTE HEPATIC FAILURE [None]
  - COAGULOPATHY [None]
  - DRUG INTERACTION [None]
  - ENCEPHALOPATHY [None]
  - FATIGUE [None]
  - HYPOGLYCAEMIA [None]
  - LIVER TRANSPLANT [None]
  - LOSS OF CONSCIOUSNESS [None]
  - METABOLIC ACIDOSIS [None]
  - NECROSIS [None]
  - OLIGURIA [None]
  - RENAL FAILURE [None]
  - SOMNOLENCE [None]
  - WEIGHT DECREASED [None]
